FAERS Safety Report 8631523 (Version 2)
Quarter: 2012Q4

REPORT INFORMATION
  Report Type: 
  Country: US (occurrence: US)
  Receive Date: 20120624
  Receipt Date: 20120904
  Transmission Date: 20130627
  Serious: Yes (Other)
  Sender: FDA-Public Use
  Company Number: US-AMGEN-USASP2012038358

PATIENT
  Age: 56 Year
  Sex: Female
  Weight: 82.54 kg

DRUGS (1)
  1. PROLIA [Suspect]
     Indication: OSTEOPOROSIS POSTMENOPAUSAL
     Dosage: 60 mg, UNK
     Route: 058
     Dates: start: 20111205

REACTIONS (3)
  - Panniculitis [Recovered/Resolved]
  - Erythema nodosum [Recovered/Resolved]
  - Cellulitis [Recovered/Resolved]
